FAERS Safety Report 23064916 (Version 3)
Quarter: 2023Q4

REPORT INFORMATION
  Report Type: Spontaneous
  Country: US (occurrence: US)
  Receive Date: 20231013
  Receipt Date: 20231120
  Transmission Date: 20240110
  Serious: Yes (Other)
  Sender: FDA-Public Use
  Company Number: US-PFIZER INC-202300316265

PATIENT
  Age: 12 Year
  Sex: Female
  Weight: 45.81 kg

DRUGS (3)
  1. OXBRYTA [Suspect]
     Active Substance: VOXELOTOR
     Indication: Sickle cell disease
     Dosage: 3 DF, 1X/DAY (IN EVENING, BY MOUTH WITH WATER)
     Route: 048
     Dates: start: 202309, end: 202310
  2. FOLIC ACID [Concomitant]
     Active Substance: FOLIC ACID
     Indication: Sickle cell disease
     Dosage: 1 DF, DAILY
  3. HYDROXYUREA [Concomitant]
     Active Substance: HYDROXYUREA
     Indication: Haemoglobin decreased
     Dosage: 2 DF, DAILY (IN MORNING)

REACTIONS (4)
  - Sickle cell anaemia with crisis [Unknown]
  - Pain in extremity [Not Recovered/Not Resolved]
  - Gait disturbance [Not Recovered/Not Resolved]
  - Illness [Unknown]

NARRATIVE: CASE EVENT DATE: 20230101
